FAERS Safety Report 16697307 (Version 1)
Quarter: 2019Q3

REPORT INFORMATION
  Report Type: Spontaneous
  Country: IE (occurrence: IE)
  Receive Date: 20190813
  Receipt Date: 20190813
  Transmission Date: 20191004
  Serious: Yes (Disabling, Other)
  Sender: FDA-Public Use
  Company Number: IE-PFIZER INC-2019342600

PATIENT
  Age: 55 Year
  Sex: Male
  Weight: 95.5 kg

DRUGS (6)
  1. CHAMPIX [Suspect]
     Active Substance: VARENICLINE TARTRATE
     Dosage: 1 MG, 2X/DAY(DAY 50 DOSE 1 MG BD)
     Route: 048
  2. CHAMPIX [Suspect]
     Active Substance: VARENICLINE TARTRATE
     Dosage: 1 MG, UNK (DAY 33 ON VARENICLINE DOSE INCREASED)
     Route: 048
  3. CHAMPIX [Suspect]
     Active Substance: VARENICLINE TARTRATE
     Indication: NICOTINE DEPENDENCE
     Dosage: 500 UG, UNK
     Route: 048
     Dates: start: 20190419
  4. CHAMPIX [Suspect]
     Active Substance: VARENICLINE TARTRATE
     Dosage: 1 MG, UNK (DAY 12 ON VARENICLINE DOSE REDUCED)
     Route: 048
  5. CHAMPIX [Suspect]
     Active Substance: VARENICLINE TARTRATE
     Dosage: 1 MG, UNK (DOSE INCREASED)
     Route: 048
  6. CHAMPIX [Suspect]
     Active Substance: VARENICLINE TARTRATE
     Dosage: 1 MG, 1X/DAY( (DAY 50 DOSE 1 MG BD. REDUCED TO OD)
     Route: 048
     Dates: end: 20190626

REACTIONS (15)
  - Arthralgia [Recovered/Resolved]
  - Fatigue [Recovered/Resolved]
  - Lower respiratory tract infection [Recovered/Resolved]
  - Depressed mood [Recovered/Resolved]
  - Increased appetite [Recovered/Resolved]
  - Dysuria [Recovered/Resolved]
  - Inflammation [Recovered/Resolved]
  - Disease recurrence [Recovered/Resolved]
  - Erythema [Recovered/Resolved]
  - Headache [Recovered/Resolved]
  - Musculoskeletal discomfort [Recovered/Resolved]
  - Nausea [Recovered/Resolved]
  - Apathy [Recovered/Resolved]
  - Sputum retention [Recovered/Resolved]
  - Neck pain [Recovered/Resolved]

NARRATIVE: CASE EVENT DATE: 20190430
